FAERS Safety Report 10276064 (Version 1)
Quarter: 2014Q3

REPORT INFORMATION
  Report Type: Spontaneous
  Country: US (occurrence: None)
  Receive Date: 20140701
  Receipt Date: 20140701
  Transmission Date: 20150326
  Serious: No
  Sender: FDA-Public Use
  Company Number: None

PATIENT
  Age: 38 Year
  Sex: Female

DRUGS (1)
  1. PRED FORTE [Suspect]
     Active Substance: PREDNISOLONE ACETATE
     Indication: IRITIS
     Dosage: TGTT 92  6 X DAY
     Route: 047
     Dates: start: 20140327

REACTIONS (2)
  - Iritis [None]
  - Disease recurrence [None]

NARRATIVE: CASE EVENT DATE: 20140327
